FAERS Safety Report 19853847 (Version 3)
Quarter: 2021Q4

REPORT INFORMATION
  Report Type: Report from Study
  Country: None (occurrence: JP)
  Receive Date: 20210920
  Receipt Date: 20211023
  Transmission Date: 20220303
  Serious: Yes (Other)
  Sender: FDA-Public Use
  Company Number: JP-ABBVIE-20K-087-3596941-00

PATIENT
  Age: 40 Year
  Sex: Male

DRUGS (6)
  1. SKYRIZI [Suspect]
     Active Substance: RISANKIZUMAB-RZAA
     Indication: Psoriasis
     Dosage: 150 MG/MONTH
     Route: 058
     Dates: start: 20200610, end: 20200610
  2. SKYRIZI [Suspect]
     Active Substance: RISANKIZUMAB-RZAA
     Route: 058
     Dates: start: 20200708
  3. SKYRIZI [Suspect]
     Active Substance: RISANKIZUMAB-RZAA
     Route: 058
     Dates: start: 20210914
  4. CLOBETASOL PROPIONATE [Concomitant]
     Active Substance: CLOBETASOL PROPIONATE
     Indication: Psoriasis
     Dosage: OPTIMAL USE
     Route: 061
     Dates: start: 20210310
  5. SARS-COV-2 VACCINE [Concomitant]
     Indication: Prophylaxis
     Route: 030
     Dates: start: 20210810, end: 20210810
  6. SARS-COV-2 VACCINE [Concomitant]
     Route: 030
     Dates: start: 20210831, end: 20210831

REACTIONS (4)
  - Sudden hearing loss [Recovered/Resolved]
  - Seborrhoeic dermatitis [Not Recovered/Not Resolved]
  - Nasopharyngitis [Recovered/Resolved]
  - Tinea pedis [Not Recovered/Not Resolved]

NARRATIVE: CASE EVENT DATE: 20200819
